FAERS Safety Report 6686536-1 (Version None)
Quarter: 2010Q2

REPORT INFORMATION
  Report Type: 
  Country: None (occurrence: None)
  Receive Date: 20100415
  Receipt Date: 20100331
  Transmission Date: 20101027
  Serious: Yes (Hospitalization)
  Sender: FDA-Public Use
  Company Number: 009556

PATIENT
  Sex: Female

DRUGS (2)
  1. CIMZIA [Suspect]
     Indication: CROHN'S DISEASE
     Dosage: SUBCUTANEOUS
     Route: 058
     Dates: start: 20081215
  2. PROZAC [Suspect]
     Indication: DEPRESSION

REACTIONS (4)
  - ALOPECIA [None]
  - DEPRESSION [None]
  - FATIGUE [None]
  - FLATULENCE [None]
